FAERS Safety Report 4304304-2 (Version None)
Quarter: 2004Q1

REPORT INFORMATION
  Report Type: 
  Country: None (occurrence: None)
  Receive Date: 20040223
  Receipt Date: 20040211
  Transmission Date: 20041129
  Serious: Yes (Hospitalization, Other)
  Sender: FDA-Public Use
  Company Number: HQWYE963812FEB04

PATIENT
  Age: 37 Year
  Sex: Female

DRUGS (1)
  1. OVRAL [Suspect]
     Dosage: 1 TABLET DAILY
     Route: 048

REACTIONS (1)
  - THROMBOSIS [None]
